FAERS Safety Report 11805818 (Version 1)
Quarter: 2015Q4

REPORT INFORMATION
  Report Type: Spontaneous
  Country: US (occurrence: US)
  Receive Date: 20151207
  Receipt Date: 20151207
  Transmission Date: 20160305
  Serious: Yes (Hospitalization, Other)
  Sender: FDA-Public Use
  Company Number: US-PAR PHARMACEUTICAL COMPANIES-2015SCPR014522

PATIENT

DRUGS (3)
  1. ALPRAZOLAM. [Suspect]
     Active Substance: ALPRAZOLAM
     Indication: ANXIETY
     Dosage: 2 MG, HS
     Route: 065
  2. ALPRAZOLAM. [Suspect]
     Active Substance: ALPRAZOLAM
     Dosage: UNK UNK, HS
     Route: 065
  3. ALPRAZOLAM. [Suspect]
     Active Substance: ALPRAZOLAM
     Indication: INSOMNIA
     Dosage: 3 MG, HS
     Route: 065

REACTIONS (8)
  - Psychotic disorder [Recovered/Resolved]
  - Urinary incontinence [None]
  - Catatonia [Recovered/Resolved]
  - Blood pressure increased [None]
  - Blood bilirubin increased [None]
  - Drug withdrawal syndrome [Recovered/Resolved]
  - Therapy cessation [Unknown]
  - Intentional product use issue [Unknown]
